FAERS Safety Report 14421317 (Version 2)
Quarter: 2018Q2

REPORT INFORMATION
  Report Type: Spontaneous
  Country: US (occurrence: US)
  Receive Date: 20180122
  Receipt Date: 20180518
  Transmission Date: 20180711
  Serious: No
  Sender: FDA-Public Use
  Company Number: US-BIOGEN-2018BI00511876

PATIENT
  Sex: Female

DRUGS (2)
  1. TECFIDERA [Suspect]
     Active Substance: DIMETHYL FUMARATE
     Indication: MULTIPLE SCLEROSIS
     Route: 048
     Dates: start: 20171214
  2. TECFIDERA [Suspect]
     Active Substance: DIMETHYL FUMARATE
     Route: 048
     Dates: start: 20171223

REACTIONS (7)
  - Memory impairment [Not Recovered/Not Resolved]
  - Flushing [Not Recovered/Not Resolved]
  - Lethargy [Unknown]
  - Visual impairment [Unknown]
  - Mobility decreased [Unknown]
  - Drug dose omission [Not Recovered/Not Resolved]
  - Rash [Not Recovered/Not Resolved]
